FAERS Safety Report 7974588-8 (Version None)
Quarter: 2011Q4

REPORT INFORMATION
  Report Type: 
  Country: None (occurrence: None)
  Receive Date: 20111213
  Receipt Date: 20111130
  Transmission Date: 20120403
  Serious: Yes (Hospitalization)
  Sender: FDA-Public Use
  Company Number: US-BAYER-2011-051139

PATIENT
  Age: 27 Year
  Sex: Female
  Weight: 68.027 kg

DRUGS (1)
  1. YAZ [Suspect]
     Indication: CONTRACEPTION
     Dosage: UNK
     Dates: start: 20090101, end: 20091101

REACTIONS (9)
  - PULMONARY EMBOLISM [None]
  - DEEP VEIN THROMBOSIS [None]
  - FEAR [None]
  - DYSPNOEA [None]
  - ANXIETY [None]
  - PAIN [None]
  - INJURY [None]
  - ANHEDONIA [None]
  - PSYCHOLOGICAL TRAUMA [None]
